FAERS Safety Report 4585348-2 (Version None)
Quarter: 2005Q1

REPORT INFORMATION
  Report Type: 
  Country: None (occurrence: None)
  Receive Date: 20050214
  Receipt Date: 20050207
  Transmission Date: 20050727
  Serious: Yes (Other)
  Sender: FDA-Public Use
  Company Number: 805#1#2005-00004

PATIENT
  Sex: Male

DRUGS (2)
  1. ALPROSTADIL [Suspect]
     Indication: SUDDEN HEARING LOSS
     Dosage: N.R. INTRAVENOUS DRIP
     Route: 041
  2. PREDNISONE [Concomitant]

REACTIONS (1)
  - DYSPNOEA [None]
